FAERS Safety Report 4725154-9 (Version None)
Quarter: 2005Q3

REPORT INFORMATION
  Report Type: 
  Country: None (occurrence: None)
  Receive Date: 20050725
  Receipt Date: 20050705
  Transmission Date: 20060218
  Serious: Yes (Other)
  Sender: FDA-Public Use
  Company Number: US_0507120137

PATIENT
  Sex: Male
  Weight: 113 kg

DRUGS (9)
  1. CYMBALTA [Suspect]
     Indication: DIABETIC NEUROPATHY
     Dosage: 60 MG DAY
     Dates: start: 20050328, end: 20050401
  2. ZOCOR [Concomitant]
  3. PRILOSEC [Concomitant]
  4. ROBAXIN [Concomitant]
  5. NASALIDE [Concomitant]
  6. PIROXICAM (PIROXICAM   /00500401/) [Concomitant]
  7. SYNTHROID (LEVOTHYROXINE SODIUM0 [Concomitant]
  8. METFORMIN [Concomitant]
  9. ELAVIL [Concomitant]

REACTIONS (10)
  - ASTHENIA [None]
  - BLOOD PRESSURE INCREASED [None]
  - CONDITION AGGRAVATED [None]
  - DECREASED APPETITE [None]
  - DEPRESSION [None]
  - INSOMNIA [None]
  - NAUSEA [None]
  - NEUROPATHIC PAIN [None]
  - SKIN WRINKLING [None]
  - SOCIAL AVOIDANT BEHAVIOUR [None]
